FAERS Safety Report 9870066 (Version 1)
Quarter: 2014Q1

REPORT INFORMATION
  Report Type: Spontaneous
  Country: US (occurrence: US)
  Receive Date: 20140205
  Receipt Date: 20140205
  Transmission Date: 20141002
  Serious: No
  Sender: FDA-Public Use
  Company Number: US-GLAXOSMITHKLINE-A1050245A

PATIENT
  Age: 60 Year
  Sex: Female

DRUGS (20)
  1. VALTREX [Suspect]
     Indication: GENITAL HERPES
     Dosage: 500MG TWICE PER DAY
     Route: 048
  2. LYRICA [Suspect]
     Indication: NEURALGIA
     Dosage: 75MG PER DAY
  3. FLEXERIL [Suspect]
     Indication: PRODUCT USED FOR UNKNOWN INDICATION
     Dosage: 10MG THREE TIMES PER DAY
     Route: 065
     Dates: start: 2008
  4. LORTAB [Suspect]
     Indication: PAIN
     Dosage: 1TAB TWICE PER DAY
     Route: 065
     Dates: start: 2008
  5. CORGARD [Concomitant]
  6. LOVASTATIN [Concomitant]
  7. ESTRADIOL [Concomitant]
  8. ALLOPURINOL [Concomitant]
  9. PRILOSEC [Concomitant]
  10. LISINOPRIL [Concomitant]
  11. CELEBREX [Concomitant]
  12. HCTZ [Concomitant]
  13. KLOR-CON [Concomitant]
  14. FISH OIL [Concomitant]
  15. VITAMIN B [Concomitant]
  16. DOCOSAHEXAENOIC ACID [Concomitant]
  17. VITAMIN D [Concomitant]
  18. EVENING PRIMROSE [Concomitant]
  19. STEROID [Concomitant]
  20. B12 [Concomitant]

REACTIONS (4)
  - Pruritus [Not Recovered/Not Resolved]
  - Hyperhidrosis [Unknown]
  - Nausea [Unknown]
  - Herpes virus infection [Unknown]
